FAERS Safety Report 4426269-5 (Version None)
Quarter: 2004Q3

REPORT INFORMATION
  Report Type: 
  Country: None (occurrence: None)
  Receive Date: 20040811
  Receipt Date: 20040723
  Transmission Date: 20050211
  Serious: Yes (Other)
  Sender: FDA-Public Use
  Company Number: JP_040703969

PATIENT
  Age: 73 Year
  Sex: Male

DRUGS (6)
  1. ONCOVIN [Suspect]
     Indication: LYMPHOMA
     Dosage: 1.4 MG OTHER
  2. CYTARABINE [Concomitant]
  3. CYCLOPHOSPHAMIDE [Concomitant]
  4. PREDNISOLONE [Concomitant]
  5. DOXORUBICIN HCL [Concomitant]
  6. RADIATION THERAPY [Concomitant]

REACTIONS (3)
  - HAEMORRHAGIC CEREBRAL INFARCTION [None]
  - REFUSAL OF TREATMENT BY RELATIVE [None]
  - WHITE BLOOD CELL COUNT DECREASED [None]
